FAERS Safety Report 12572810 (Version 2)
Quarter: 2016Q4

REPORT INFORMATION
  Report Type: Spontaneous
  Country: DE (occurrence: DE)
  Receive Date: 20160720
  Receipt Date: 20161108
  Transmission Date: 20170207
  Serious: Yes (Life-Threatening, Hospitalization)
  Sender: FDA-Public Use
  Company Number: DE-BAXTER-2016BAX037449

PATIENT
  Age: 72 Year
  Sex: Male
  Weight: 90 kg

DRUGS (10)
  1. ENDOXAN 1G [Suspect]
     Active Substance: CYCLOPHOSPHAMIDE
     Indication: PLASMA CELL MYELOMA
     Dosage: SHORT INFUSION (15-30 MIN)
     Route: 041
  2. BORTEZOMIB [Suspect]
     Active Substance: BORTEZOMIB
     Indication: PLASMA CELL MYELOMA
     Dosage: 6 CYCLES
     Route: 058
  3. METAMIZOL [Concomitant]
     Active Substance: METAMIZOLE SODIUM
     Indication: ANALGESIC THERAPY
     Dosage: 1-1-1
     Route: 048
  4. ENDOXAN 1G [Suspect]
     Active Substance: CYCLOPHOSPHAMIDE
     Dosage: SHORT INFUSION (15-30 MIN)
     Route: 041
     Dates: start: 20160608
  5. MOVICOL [Concomitant]
     Active Substance: POLYETHYLENE GLYCOL 3350\POTASSIUM CHLORIDE\SODIUM BICARBONATE\SODIUM CHLORIDE
     Indication: GASTROOESOPHAGEAL REFLUX DISEASE
     Dosage: 0-0-1
     Route: 048
  6. HYDROMORPHON RET. [Concomitant]
     Indication: ANALGESIC THERAPY
     Dosage: 1-0-1
     Route: 048
  7. PREGABALIN. [Concomitant]
     Active Substance: PREGABALIN
     Indication: ANALGESIC THERAPY
     Dosage: 1-0-1
     Route: 048
  8. OMEPRAZOL [Concomitant]
     Active Substance: OMEPRAZOLE
     Indication: SUPPORTIVE CARE
     Dosage: 1-0-0
     Route: 048
  9. DEXAMETHASON [Suspect]
     Active Substance: DEXAMETHASONE
     Indication: PLASMA CELL MYELOMA
     Dosage: 6 CYCLES
     Route: 048
  10. DEXAMETHASON [Suspect]
     Active Substance: DEXAMETHASONE
     Indication: ANTIEMETIC SUPPORTIVE CARE
     Dosage: 1-0-1
     Route: 048

REACTIONS (12)
  - Sepsis [Recovering/Resolving]
  - Vomiting [Unknown]
  - Dysphagia [Unknown]
  - Language disorder [Not Recovered/Not Resolved]
  - Somnolence [Not Recovered/Not Resolved]
  - Pneumonia aspiration [Unknown]
  - Aspiration [Unknown]
  - Generalised tonic-clonic seizure [Recovering/Resolving]
  - Sopor [Not Recovered/Not Resolved]
  - Gait disturbance [Not Recovered/Not Resolved]
  - Confusional state [Not Recovered/Not Resolved]
  - Disturbance in attention [Unknown]

NARRATIVE: CASE EVENT DATE: 201606
